FAERS Safety Report 9158603 (Version 1)
Quarter: 2013Q1

REPORT INFORMATION
  Report Type: Spontaneous
  Country: US (occurrence: US)
  Receive Date: 20130312
  Receipt Date: 20130312
  Transmission Date: 20140127
  Serious: Yes (Other)
  Sender: FDA-Public Use
  Company Number: US-PFIZER INC-2013082092

PATIENT
  Age: 54 Year
  Sex: Male
  Weight: 140 kg

DRUGS (2)
  1. LYRICA [Suspect]
     Indication: FIBROMYALGIA
     Dosage: 250 MG, 2X/DAY
     Route: 048
     Dates: start: 201302
  2. CYMBALTA [Concomitant]
     Indication: DEPRESSION
     Dosage: 60 MG, 1X/DAY

REACTIONS (1)
  - Blood glucose increased [Not Recovered/Not Resolved]
